FAERS Safety Report 13853049 (Version 2)
Quarter: 2017Q3

REPORT INFORMATION
  Report Type: Spontaneous
  Country: IL (occurrence: IL)
  Receive Date: 20170809
  Receipt Date: 20170810
  Transmission Date: 20171127
  Serious: Yes (Death, Life-Threatening, Hospitalization, Other)
  Sender: FDA-Public Use
  Company Number: IL-SHIRE-IL201716260

PATIENT
  Age: 43 Year
  Sex: Female

DRUGS (2)
  1. GATTEX [Suspect]
     Active Substance: TEDUGLUTIDE\WATER
     Indication: SHORT-BOWEL SYNDROME
     Dosage: 5 MG, 1X/DAY:QD
     Route: 058
     Dates: start: 20170404, end: 2017
  2. TPN [Concomitant]
     Active Substance: AMINO ACIDS\DEXTROSE\ELECTROLYTES NOS\SOYBEAN OIL
     Indication: PRODUCT USED FOR UNKNOWN INDICATION
     Dosage: UNK, UNKNOWN
     Route: 065

REACTIONS (6)
  - Device related sepsis [Fatal]
  - Skin discolouration [Unknown]
  - Asthenia [Unknown]
  - Bacterial infection [Fatal]
  - Fatigue [Unknown]
  - Pyrexia [Unknown]
